FAERS Safety Report 8962597 (Version 1)
Quarter: 2012Q4

REPORT INFORMATION
  Report Type: Spontaneous
  Country: US (occurrence: None)
  Receive Date: 20121211
  Receipt Date: 20121211
  Transmission Date: 20130627
  Serious: Yes (Death, Hospitalization)
  Sender: FDA-Public Use
  Company Number: None

PATIENT
  Age: 57 Year
  Sex: Male

DRUGS (11)
  1. REVLIMID 10MG CELGENE [Suspect]
     Indication: PLASMA CELL LEUKEMIA
     Dosage: 10mg QDx14d/21d orally
     Route: 048
  2. DECADRON [Concomitant]
     Indication: PLASMA CELL LEUKEMIA
  3. VELCADE [Concomitant]
  4. MEGACE [Concomitant]
  5. ZOFRAN [Concomitant]
  6. COMPAZINE [Concomitant]
  7. FORTICAL [Concomitant]
  8. METOPROLOL [Concomitant]
  9. ULTRAM [Concomitant]
  10. MIRTAZAPINE [Concomitant]
  11. ZOLOFT [Concomitant]

REACTIONS (3)
  - Hyperkalaemia [None]
  - Renal failure acute [None]
  - Bradycardia [None]
